FAERS Safety Report 8599690-1 (Version None)
Quarter: 2012Q2

REPORT INFORMATION
  Report Type: 
  Country: None (occurrence: None)
  Receive Date: 20120423
  Receipt Date: 20100621
  Transmission Date: 20120825
  Serious: Yes (Other)
  Sender: FDA-Public Use
  Company Number: PHHY2010US37212

PATIENT
  Age: 88 Year
  Weight: 82.2 kg

DRUGS (2)
  1. EXJADE [Suspect]
     Indication: LYMPHATIC SYSTEM NEOPLASM
     Dosage: 1500 MG DAILY, ORAL
     Route: 048
  2. EXJADE [Suspect]
     Indication: HAEMATOPOIETIC NEOPLASM
     Dosage: 1500 MG DAILY, ORAL
     Route: 048

REACTIONS (1)
  - NEOPLASM MALIGNANT [None]
